FAERS Safety Report 9568100 (Version 1)
Quarter: 2013Q3

REPORT INFORMATION
  Report Type: Spontaneous
  Country: US (occurrence: US)
  Receive Date: 20130930
  Receipt Date: 20130930
  Transmission Date: 20140515
  Serious: No
  Sender: FDA-Public Use
  Company Number: US-AMGEN-USASP2013054972

PATIENT
  Age: 42 Year
  Sex: Male
  Weight: 93.42 kg

DRUGS (6)
  1. ENBREL [Suspect]
     Indication: PRODUCT USED FOR UNKNOWN INDICATION
     Dosage: 50 MG, QWK
     Route: 058
  2. PREDNISONE [Concomitant]
     Dosage: UNK
  3. HYDROCODONE/APAP [Concomitant]
     Dosage: 7.5 TO 500
  4. VITAMIN D                          /00107901/ [Concomitant]
     Dosage: 1000 UNIT, UNK
  5. CALCIUM [Concomitant]
     Dosage: 500 UNK, UNK
  6. FOLIC ACID [Concomitant]
     Dosage: UNK

REACTIONS (1)
  - Pain [Unknown]
